FAERS Safety Report 24972834 (Version 2)
Quarter: 2025Q1

REPORT INFORMATION
  Report Type: Report from Study
  Country: GB (occurrence: GB)
  Receive Date: 20250215
  Receipt Date: 20250312
  Transmission Date: 20250408
  Serious: Yes (Other)
  Sender: SAMSUNG BIOEPIS
  Company Number: GB-SAMSUNG BIOEPIS-SB-2025-05433

PATIENT
  Sex: Female

DRUGS (1)
  1. PYZCHIVA [Suspect]
     Active Substance: USTEKINUMAB-TTWE
     Indication: Crohn^s disease
     Dosage: 90MG/1ML;
     Route: 058

REACTIONS (4)
  - Haematochezia [Unknown]
  - Abdominal pain upper [Unknown]
  - Pain [Unknown]
  - Nasal congestion [Unknown]
